FAERS Safety Report 18527701 (Version 1)
Quarter: 2020Q4

REPORT INFORMATION
  Report Type: Spontaneous
  Country: US (occurrence: US)
  Receive Date: 20201120
  Receipt Date: 20201120
  Transmission Date: 20210114
  Serious: No
  Sender: FDA-Public Use
  Company Number: US-TEVA-2020-US-1850350

PATIENT
  Age: 85 Year
  Sex: Female

DRUGS (2)
  1. FLUTICASONE PROPIONATE / SALMETEROL XINOFOATE [Suspect]
     Active Substance: FLUTICASONE PROPIONATE\SALMETEROL XINAFOATE
     Dosage: FLUTICASONE PROPIONATE -113 MCG AND SALMETEROL XINOFOATE - 14 MCG
     Route: 055
  2. FLUTICASONE PROPIONATE / SALMETEROL XINOFOATE [Suspect]
     Active Substance: FLUTICASONE PROPIONATE\SALMETEROL XINAFOATE
     Dosage: FLUTICASONE PROPIONATE -113 MCG AND SALMETEROL XINOFOATE - 14 MCG
     Route: 055
     Dates: start: 202010

REACTIONS (3)
  - Cough [Unknown]
  - Haemoptysis [Unknown]
  - Device malfunction [Unknown]

NARRATIVE: CASE EVENT DATE: 202010
